FAERS Safety Report 14773919 (Version 5)
Quarter: 2019Q1

REPORT INFORMATION
  Report Type: Spontaneous
  Country: US (occurrence: US)
  Receive Date: 20180418
  Receipt Date: 20190306
  Transmission Date: 20190417
  Serious: Yes (Death, Other)
  Sender: FDA-Public Use
  Company Number: US-ASTRAZENECA-2018SE48857

PATIENT
  Age: 18404 Day
  Sex: Male
  Weight: 91.5 kg

DRUGS (23)
  1. PRILOSEC [Suspect]
     Active Substance: OMEPRAZOLE MAGNESIUM
     Route: 048
     Dates: start: 20150923
  2. DEXILANT [Suspect]
     Active Substance: DEXLANSOPRAZOLE
     Route: 048
     Dates: start: 201301, end: 201712
  3. PREVACID [Suspect]
     Active Substance: LANSOPRAZOLE
     Route: 065
     Dates: start: 201301, end: 201712
  4. MINOXIDIL. [Concomitant]
     Active Substance: MINOXIDIL
  5. PRILOSEC OTC [Suspect]
     Active Substance: OMEPRAZOLE MAGNESIUM
     Route: 048
     Dates: start: 201301, end: 201712
  6. SIMVASTATIN. [Concomitant]
     Active Substance: SIMVASTATIN
  7. MINOXIDIL. [Concomitant]
     Active Substance: MINOXIDIL
  8. NEXIUM [Suspect]
     Active Substance: ESOMEPRAZOLE MAGNESIUM
     Route: 048
     Dates: start: 201301, end: 201712
  9. ASPIRIN. [Concomitant]
     Active Substance: ASPIRIN
  10. INSULIN [Concomitant]
     Active Substance: INSULIN NOS
  11. METOLAZONE. [Concomitant]
     Active Substance: METOLAZONE
  12. MIDAZOLAM HYDROCHLORIDE. [Concomitant]
     Active Substance: MIDAZOLAM HYDROCHLORIDE
  13. PREVACID 24 HR [Suspect]
     Active Substance: LANSOPRAZOLE
     Route: 065
     Dates: start: 201301, end: 201712
  14. ACETAMINOPHEN. [Concomitant]
     Active Substance: ACETAMINOPHEN
  15. PRILOSEC [Suspect]
     Active Substance: OMEPRAZOLE MAGNESIUM
     Route: 048
     Dates: start: 201301, end: 201712
  16. DIPHENHYDRAMINE. [Concomitant]
     Active Substance: DIPHENHYDRAMINE
  17. TUM [Concomitant]
  18. BUMETANIDE. [Concomitant]
     Active Substance: BUMETANIDE
  19. NEXIUM 24HR [Suspect]
     Active Substance: ESOMEPRAZOLE MAGNESIUM
     Route: 048
     Dates: start: 201301, end: 201712
  20. PROTONIX [Suspect]
     Active Substance: PANTOPRAZOLE SODIUM
     Route: 048
     Dates: start: 201301, end: 201712
  21. CLONIDINE. [Concomitant]
     Active Substance: CLONIDINE
  22. LORAZEPAM. [Concomitant]
     Active Substance: LORAZEPAM
  23. RENVELA [Concomitant]
     Active Substance: SEVELAMER CARBONATE

REACTIONS (8)
  - Death [Fatal]
  - Acute kidney injury [Unknown]
  - Hyperparathyroidism secondary [Unknown]
  - Nephrogenic anaemia [Unknown]
  - Chronic kidney disease-mineral and bone disorder [Unknown]
  - Renal failure [Unknown]
  - Chronic kidney disease [Unknown]
  - End stage renal disease [Unknown]

NARRATIVE: CASE EVENT DATE: 20140414
